FAERS Safety Report 8268917-8 (Version None)
Quarter: 2012Q2

REPORT INFORMATION
  Report Type: 
  Country: None (occurrence: None)
  Receive Date: 20120409
  Receipt Date: 20120329
  Transmission Date: 20120825
  Serious: Yes (Other)
  Sender: FDA-Public Use
  Company Number: CA-JNJFOC-20120314882

PATIENT
  Sex: Male
  Weight: 75 kg

DRUGS (8)
  1. CLONAZEPAM [Concomitant]
     Route: 065
  2. REMICADE [Suspect]
     Route: 042
     Dates: start: 20050101
  3. CRESTOR [Concomitant]
     Route: 065
  4. RABEPRAZOLE SODIUM [Concomitant]
     Route: 065
  5. METHOTREXATE [Concomitant]
     Route: 065
  6. REMICADE [Suspect]
     Indication: RHEUMATOID ARTHRITIS
     Route: 042
     Dates: start: 20120329
  7. ATENOLOL [Concomitant]
     Route: 065
  8. TYLENOL W/ CODEINE NO. 3 [Concomitant]
     Route: 065

REACTIONS (2)
  - TACHYCARDIA [None]
  - HEART RATE IRREGULAR [None]
